FAERS Safety Report 10099858 (Version 2)
Quarter: 2014Q2

REPORT INFORMATION
  Report Type: Spontaneous
  Country: US (occurrence: US)
  Receive Date: 20140423
  Receipt Date: 20140423
  Transmission Date: 20141212
  Serious: No
  Sender: FDA-Public Use
  Company Number: US-GILEAD-2013-0072878

PATIENT
  Sex: Male
  Weight: 119.73 kg

DRUGS (20)
  1. LETAIRIS [Suspect]
     Indication: PULMONARY ARTERIAL HYPERTENSION
     Dosage: 5 MG, QD
     Route: 048
     Dates: start: 20120713
  2. LEVEMIR [Concomitant]
  3. AMBIEN [Concomitant]
  4. DUONEB [Concomitant]
  5. VENTOLIN HFA [Concomitant]
  6. LEVAQUIN [Concomitant]
  7. SYMBICORT [Concomitant]
  8. LORAZEPAM [Concomitant]
  9. HYDROCODONE W/ACETAMINOPHEN [Concomitant]
  10. PRAVASTATIN [Concomitant]
  11. CYMBALTA [Concomitant]
  12. LYRICA [Concomitant]
  13. ESCITALOPRAM OXALATE [Concomitant]
  14. OMEPRAZOLE [Concomitant]
  15. HUMALOG [Concomitant]
  16. CITALOPRAM HYDROBROMIDE [Concomitant]
  17. FUROSEMIDE [Concomitant]
  18. HYDROXYZINE HCL [Concomitant]
  19. ALBUTEROL W/IPRATROPIUM [Concomitant]
  20. ALBUTEROL SULFATE [Concomitant]

REACTIONS (3)
  - Hypersensitivity [Unknown]
  - Unevaluable event [Unknown]
  - Fatigue [Unknown]
